FAERS Safety Report 9356893 (Version 1)
Quarter: 2013Q2

REPORT INFORMATION
  Report Type: Spontaneous
  Country: TW (occurrence: TW)
  Receive Date: 20130620
  Receipt Date: 20130620
  Transmission Date: 20140414
  Serious: Yes (Hospitalization)
  Sender: FDA-Public Use
  Company Number: TW-009507513-1306TWN007032

PATIENT
  Age: 66 Year
  Sex: Female

DRUGS (7)
  1. PEG-INTRON [Suspect]
     Indication: CHRONIC HEPATITIS C
     Dosage: TOTAL DAILY DOSE 100 MICROGRAM, QW
     Route: 058
     Dates: start: 20130430, end: 20130604
  2. FLUNARIZINE HYDROCHLORIDE [Concomitant]
     Indication: MIGRAINE
     Dosage: TATAL DAILY 10MG
     Route: 048
     Dates: start: 20001028
  3. DIAZEPAM [Concomitant]
     Indication: INSOMNIA
     Dosage: TATAL DAILY 2MG
     Route: 048
     Dates: start: 20061120
  4. IMIPRAMINE HYDROCHLORIDE [Concomitant]
     Indication: DEPRESSION
     Dosage: TATAL DAILY 25MG
     Route: 048
     Dates: start: 19980114
  5. PROPRANOLOL HYDROCHLORIDE [Concomitant]
     Indication: HYPERTENSION
     Dosage: TATAL DAILY 20MG
     Route: 048
     Dates: start: 20040906
  6. RIBAVIRIN [Suspect]
     Indication: CHRONIC HEPATITIS C
     Dosage: TATAL DAILY 800MG
     Route: 048
     Dates: start: 20130430
  7. BOCEPREVIR [Suspect]
     Indication: CHRONIC HEPATITIS C
     Dosage: TATAL DAILY 2400MG
     Route: 048
     Dates: start: 20130528

REACTIONS (1)
  - Urinary tract infection [Recovering/Resolving]
